FAERS Safety Report 16391503 (Version 1)
Quarter: 2019Q2

REPORT INFORMATION
  Report Type: Spontaneous
  Country: HU (occurrence: HU)
  Receive Date: 20190605
  Receipt Date: 20190605
  Transmission Date: 20190711
  Serious: Yes (Other)
  Sender: FDA-Public Use
  Company Number: HU-ABBVIE-19K-076-2807508-00

PATIENT

DRUGS (6)
  1. VENCLYXTO [Suspect]
     Active Substance: VENETOCLAX
     Indication: CHRONIC LYMPHOCYTIC LEUKAEMIA
     Route: 048
  2. OBINUTUZUMAB. [Concomitant]
     Active Substance: OBINUTUZUMAB
     Indication: CHRONIC LYMPHOCYTIC LEUKAEMIA
  3. VENCLYXTO [Suspect]
     Active Substance: VENETOCLAX
     Indication: RICHTER^S SYNDROME
  4. OBINUTUZUMAB. [Concomitant]
     Active Substance: OBINUTUZUMAB
     Indication: RICHTER^S SYNDROME
  5. DUVELISIB [Concomitant]
     Active Substance: DUVELISIB
     Indication: RICHTER^S SYNDROME
  6. DUVELISIB [Concomitant]
     Active Substance: DUVELISIB
     Indication: CHRONIC LYMPHOCYTIC LEUKAEMIA

REACTIONS (4)
  - General symptom [Unknown]
  - Off label use [Unknown]
  - Pancytopenia [Unknown]
  - Cytopenia [Unknown]
